FAERS Safety Report 6516319-4 (Version None)
Quarter: 2009Q4

REPORT INFORMATION
  Report Type: 
  Country: None (occurrence: None)
  Receive Date: 20091223
  Receipt Date: 20091217
  Transmission Date: 20100525
  Serious: Yes (Death, Other)
  Sender: FDA-Public Use
  Company Number: PL-BRISTOL-MYERS SQUIBB COMPANY-14904296

PATIENT

DRUGS (3)
  1. REYATAZ [Suspect]
     Dosage: 2 CAPS/D; FROM 12JAN2009 300MG 1 CAPS/D
     Route: 064
     Dates: start: 20080728
  2. TRUVADA [Suspect]
     Route: 064
     Dates: start: 20080728
  3. NORVIR [Suspect]
     Route: 064
     Dates: start: 20080728

REACTIONS (2)
  - DEATH NEONATAL [None]
  - PREMATURE BABY [None]
